FAERS Safety Report 6761864-X (Version None)
Quarter: 2010Q2

REPORT INFORMATION
  Report Type: 
  Country: None (occurrence: None)
  Receive Date: 20100609
  Receipt Date: 20100604
  Transmission Date: 20101027
  Serious: Yes (Death, Hospitalization)
  Sender: FDA-Public Use
  Company Number: PHHY2010BR36592

PATIENT
  Sex: Female

DRUGS (2)
  1. EXELON [Suspect]
     Indication: DEMENTIA ALZHEIMER'S TYPE
     Dosage: 9MG/5CM2, ONCE PER DAY
     Route: 062
     Dates: start: 20090101
  2. EXELON [Suspect]
     Dosage: 18MG/10CM2 , ONCE PER DAY
     Route: 062
     Dates: start: 20090201

REACTIONS (5)
  - BLOOD PRESSURE SYSTOLIC INCREASED [None]
  - COMA [None]
  - HAEMORRHAGIC STROKE [None]
  - HEART RATE INCREASED [None]
  - NAUSEA [None]
